FAERS Safety Report 20958559 (Version 11)
Quarter: 2022Q3

REPORT INFORMATION
  Report Type: Report from Study
  Country: AR (occurrence: AR)
  Receive Date: 20220614
  Receipt Date: 20220926
  Transmission Date: 20221027
  Serious: Yes (Life-Threatening, Hospitalization, Other)
  Sender: FDA-Public Use
  Company Number: AR-NOVARTISPH-NVSC2022AR133543

PATIENT
  Age: 2 Year
  Sex: Female

DRUGS (1)
  1. ZOLGENSMA [Suspect]
     Active Substance: ONASEMNOGENE ABEPARVOVEC-XIOI
     Indication: Spinal muscular atrophy
     Dosage: UNK UNK, ONCE/SINGLE
     Route: 042
     Dates: start: 20220603

REACTIONS (39)
  - Platelet count decreased [Unknown]
  - Thrombocytopenia [Unknown]
  - Red blood cell count decreased [Unknown]
  - Haematocrit decreased [Unknown]
  - Haemoglobin decreased [Unknown]
  - Contusion [Unknown]
  - Tachycardia [Unknown]
  - C-reactive protein abnormal [Unknown]
  - Blood creatinine abnormal [Unknown]
  - Increased bronchial secretion [Unknown]
  - Dyspnoea [Unknown]
  - White blood cell count abnormal [Unknown]
  - Haematocrit abnormal [Unknown]
  - Diarrhoea [Recovered/Resolved]
  - Blood lactate dehydrogenase abnormal [Unknown]
  - Haemolytic anaemia [Unknown]
  - Blood bilirubin unconjugated increased [Unknown]
  - Lymphocyte count increased [Unknown]
  - Troponin T increased [Unknown]
  - Monocyte count increased [Unknown]
  - Aspartate aminotransferase abnormal [Unknown]
  - Blood bilirubin increased [Unknown]
  - Pyrexia [Unknown]
  - Neutrophil count decreased [Unknown]
  - Pericardial effusion [Unknown]
  - Product use issue [Not Recovered/Not Resolved]
  - Muscular weakness [Not Recovered/Not Resolved]
  - Dysstasia [Unknown]
  - Salivary hypersecretion [Unknown]
  - Prothrombin time shortened [Unknown]
  - Rhinorrhoea [Unknown]
  - Dysphagia [Unknown]
  - Respiratory syncytial virus test positive [Unknown]
  - Blood pH decreased [Unknown]
  - Oxygen saturation decreased [Unknown]
  - Blood creatinine increased [Unknown]
  - Alanine aminotransferase increased [Unknown]
  - Aspartate aminotransferase increased [Unknown]
  - Blood alkaline phosphatase increased [Unknown]

NARRATIVE: CASE EVENT DATE: 20220603
